FAERS Safety Report 6252135-9 (Version None)
Quarter: 2009Q2

REPORT INFORMATION
  Report Type: 
  Country: None (occurrence: None)
  Receive Date: 20090630
  Receipt Date: 20050901
  Transmission Date: 20091009
  Serious: Yes (Death, Hospitalization)
  Sender: FDA-Public Use
  Company Number: US-ROCHE-639093

PATIENT
  Sex: Female

DRUGS (14)
  1. ENFUVIRTIDE [Suspect]
     Route: 065
     Dates: start: 20050303, end: 20050101
  2. ENFUVIRTIDE [Suspect]
     Route: 065
     Dates: start: 20060502, end: 20060912
  3. NORVIR [Concomitant]
     Dates: start: 20011108, end: 20050621
  4. VIREAD [Concomitant]
     Dates: start: 20011108, end: 20050621
  5. COMBIVIR [Concomitant]
     Dates: start: 20031202, end: 20050621
  6. LEXIVA [Concomitant]
     Dates: start: 20040907, end: 20050621
  7. TRUVADA [Concomitant]
     Dates: start: 20050621, end: 20051201
  8. VIRACEPT [Concomitant]
     Dates: start: 20050621, end: 20050901
  9. ZIAGEN [Concomitant]
     Dates: start: 20050621, end: 20051201
  10. KALETRA [Concomitant]
     Dates: start: 20050901, end: 20050927
  11. INVIRASE [Concomitant]
     Dates: start: 20050927, end: 20051201
  12. DIFLUCAN [Concomitant]
     Dates: start: 20031104
  13. BACTRIM DS [Concomitant]
     Dates: start: 20031202, end: 20050816
  14. MYAMBUTOL [Concomitant]
     Dates: start: 20040907, end: 20050101

REACTIONS (6)
  - ABDOMINAL PAIN [None]
  - DEATH [None]
  - HIV INFECTION [None]
  - LIVER FUNCTION TEST ABNORMAL [None]
  - NAUSEA [None]
  - VOMITING [None]
